FAERS Safety Report 4854525-5 (Version None)
Quarter: 2005Q4

REPORT INFORMATION
  Report Type: 
  Country: None (occurrence: None)
  Receive Date: 20051213
  Receipt Date: 20051130
  Transmission Date: 20060501
  Serious: Yes (Life-Threatening, Hospitalization)
  Sender: FDA-Public Use
  Company Number: 2005149559

PATIENT
  Age: 77 Year
  Sex: Male
  Weight: 40 kg

DRUGS (7)
  1. VFEND [Suspect]
     Indication: MYELITIS
     Dosage: 6 MG/KG (1 IN 1 D) INTRAVENOUS
     Route: 042
     Dates: start: 20050930, end: 20051017
  2. MEROPEN (MEROPENEM) [Suspect]
     Indication: RESPIRATORY TRACT INFECTION
     Dosage: 1 GRAM (2 IN 1 D) INTRAVENOUS
     Route: 042
     Dates: start: 20051008, end: 20051014
  3. SELBEX (TEPRENONE) [Concomitant]
  4. NELBON (NITRAZEPAM) [Concomitant]
  5. ROXATIDINE ACETATE HCL [Concomitant]
  6. DICLOFENAC SODIUM [Concomitant]
  7. AMLODIPINE [Concomitant]

REACTIONS (13)
  - AMMONIA INCREASED [None]
  - BODY TEMPERATURE INCREASED [None]
  - C-REACTIVE PROTEIN INCREASED [None]
  - CHILLS [None]
  - DELUSION [None]
  - DEPRESSED LEVEL OF CONSCIOUSNESS [None]
  - GLOSSOPTOSIS [None]
  - HALLUCINATION [None]
  - ORAL INTAKE REDUCED [None]
  - PCO2 INCREASED [None]
  - RESPIRATORY TRACT INFECTION [None]
  - SOMNOLENCE [None]
  - VISUAL DISTURBANCE [None]
